FAERS Safety Report 8884765 (Version 1)
Quarter: 2012Q4

REPORT INFORMATION
  Report Type: 
  Country: IT (occurrence: IT)
  Receive Date: 20121102
  Receipt Date: 20121102
  Transmission Date: 20130627
  Serious: Yes (Hospitalization)
  Sender: FDA-Public Use
  Company Number: IT-BAYER-2012-114121

PATIENT
  Age: 85 Year
  Sex: Male

DRUGS (7)
  1. CARDIOASPIRIN [Suspect]
     Indication: THROMBOSIS PROPHYLAXIS
     Dosage: 100 mg, QD
     Route: 048
     Dates: start: 20120601, end: 20120925
  2. COUMADIN [Suspect]
     Indication: CHRONIC ATRIAL FIBRILLATION
     Dosage: Daily dose 2.5 mg
     Route: 048
     Dates: start: 20020601, end: 20120925
  3. FUROSEMIDE [Concomitant]
     Dosage: Daily dose 25 mg
     Route: 048
  4. ENALAPRIL [Concomitant]
     Dosage: Daily dose 5 mg
     Route: 048
  5. EUTIROX [Concomitant]
     Dosage: Daily dose 100 ?g
     Route: 048
  6. TORVAST [Concomitant]
     Dosage: Daily dose 20 mg
     Route: 048
  7. CORDARONE [Concomitant]
     Dosage: Daily dose 200 mg
     Route: 048

REACTIONS (5)
  - Pyrexia [Recovering/Resolving]
  - Anaemia [Recovering/Resolving]
  - Haematoma [Recovering/Resolving]
  - Gait disturbance [Recovering/Resolving]
  - Groin pain [Recovering/Resolving]
